FAERS Safety Report 4966069-0 (Version None)
Quarter: 2006Q2

REPORT INFORMATION
  Report Type: 
  Country: None (occurrence: None)
  Receive Date: 20060407
  Receipt Date: 20060206
  Transmission Date: 20061013
  Serious: Yes (Other)
  Sender: FDA-Public Use
  Company Number: PHEH2006US01749

PATIENT
  Age: 82 Year
  Sex: Female

DRUGS (7)
  1. LOTREL [Suspect]
     Indication: HYPERTENSION
     Route: 048
     Dates: end: 20051201
  2. ACIPHEX [Suspect]
     Route: 048
     Dates: end: 20051201
  3. ACIPHEX [Suspect]
     Route: 048
     Dates: end: 20060117
  4. LEXAPRO [Suspect]
     Indication: DEPRESSION
     Dosage: 20 MG, QD
     Route: 048
     Dates: start: 20030301, end: 20051101
  5. LEXAPRO [Suspect]
     Dosage: 22.5 MG, QD
     Route: 048
     Dates: start: 20051101, end: 20060118
  6. LEXAPRO [Suspect]
     Dosage: 15 MG, QD
     Route: 048
     Dates: start: 20060119
  7. HYDROCHLOROTHIAZIDE W/TRIAMTERENE [Concomitant]

REACTIONS (8)
  - ANOREXIA [None]
  - APATHY [None]
  - ASTHENIA [None]
  - BLOOD CREATININE INCREASED [None]
  - BLOOD UREA INCREASED [None]
  - HYPERSOMNIA [None]
  - NEPHRITIS INTERSTITIAL [None]
  - RENAL ARTERY STENOSIS [None]
